FAERS Safety Report 24803467 (Version 1)
Quarter: 2025Q1

REPORT INFORMATION
  Report Type: Other
  Country: VN (occurrence: VN)
  Receive Date: 20250103
  Receipt Date: 20250103
  Transmission Date: 20250409
  Serious: Yes (Death, Other)
  Sender: ANI
  Company Number: VN-ANIPHARMA-015260

PATIENT
  Age: 70 Year
  Sex: Male

DRUGS (5)
  1. CYCLOPHOSPHAMIDE [Suspect]
     Active Substance: CYCLOPHOSPHAMIDE
     Indication: Non-Hodgkin^s lymphoma
     Dates: start: 202203
  2. RITUXIMAB [Concomitant]
     Active Substance: RITUXIMAB
     Indication: Non-Hodgkin^s lymphoma
     Dates: start: 202203
  3. EPIRUBICIN [Concomitant]
     Active Substance: EPIRUBICIN
     Indication: Non-Hodgkin^s lymphoma
     Dates: start: 202203
  4. VINCRISTINE [Concomitant]
     Active Substance: VINCRISTINE
     Indication: Non-Hodgkin^s lymphoma
     Dates: start: 202203
  5. METHYLPREDNISOLONE [Concomitant]
     Active Substance: METHYLPREDNISOLONE
     Indication: Non-Hodgkin^s lymphoma
     Dates: start: 202203

REACTIONS (2)
  - Strongyloidiasis [Fatal]
  - Sepsis [Fatal]
